FAERS Safety Report 17231428 (Version 1)
Quarter: 2020Q1

REPORT INFORMATION
  Report Type: Spontaneous
  Country: US (occurrence: US)
  Receive Date: 20200103
  Receipt Date: 20200103
  Transmission Date: 20200409
  Serious: No
  Sender: FDA-Public Use
  Company Number: US-BAYER-2019-237543

PATIENT
  Age: 5 Year
  Sex: Female
  Weight: 18 kg

DRUGS (1)
  1. MIRALAX [Suspect]
     Active Substance: POLYETHYLENE GLYCOL 3350
     Indication: GASTROINTESTINAL DISORDER
     Dosage: UNK
     Route: 048

REACTIONS (4)
  - Faeces discoloured [Unknown]
  - Incorrect dose administered [Unknown]
  - Expired product administered [Unknown]
  - Product administered to patient of inappropriate age [None]

NARRATIVE: CASE EVENT DATE: 20191226
